FAERS Safety Report 19149629 (Version 1)
Quarter: 2021Q2

REPORT INFORMATION
  Report Type: Spontaneous
  Country: US (occurrence: US)
  Receive Date: 20210417
  Receipt Date: 20210417
  Transmission Date: 20210717
  Serious: Yes (Other)
  Sender: FDA-Public Use
  Company Number: US-CADILA HEALTHCARE LIMITED-US-ZYDUS-064807

PATIENT

DRUGS (5)
  1. PREDNISONE. [Suspect]
     Active Substance: PREDNISONE
     Indication: FACIAL PARALYSIS
     Dosage: 20 MILLIGRAM, TID
     Dates: start: 20210324, end: 20210329
  2. PREDNISONE. [Suspect]
     Active Substance: PREDNISONE
     Indication: PRESCRIPTION DRUG USED WITHOUT A PRESCRIPTION
  3. VENLAFAXINE [Suspect]
     Active Substance: VENLAFAXINE HYDROCHLORIDE
     Indication: MYALGIA
     Dosage: 37.5 MILLIGRAM
     Route: 048
  4. VALACYCLOVIR HCL [Concomitant]
     Active Substance: VALACYCLOVIR HYDROCHLORIDE
     Indication: PRODUCT USED FOR UNKNOWN INDICATION
     Dosage: 1 GRAM
     Dates: start: 20210324, end: 20210331
  5. TRAZODONE [Concomitant]
     Active Substance: TRAZODONE HYDROCHLORIDE
     Indication: SLEEP APNOEA SYNDROME
     Dosage: 1/4 TO 1/2 TABLET BEFORE BEDTIME

REACTIONS (5)
  - Dependence [Unknown]
  - Headache [Recovering/Resolving]
  - Bell^s palsy [Recovering/Resolving]
  - Prescription drug used without a prescription [Unknown]
  - Off label use [Unknown]

NARRATIVE: CASE EVENT DATE: 20210312
